FAERS Safety Report 7213417-7 (Version None)
Quarter: 2010Q4

REPORT INFORMATION
  Report Type: 
  Country: None (occurrence: None)
  Receive Date: 20101229
  Receipt Date: 20101215
  Transmission Date: 20110411
  Serious: Yes (Other)
  Sender: FDA-Public Use
  Company Number: 2010PL000178

PATIENT
  Age: 22 Year
  Sex: Female
  Weight: 102.9665 kg

DRUGS (3)
  1. LOTRONEX [Suspect]
     Indication: IRRITABLE BOWEL SYNDROME
     Dosage: 0.5 MG; BID; PO
     Route: 048
     Dates: start: 20101123, end: 20101203
  2. LEXAPRO [Concomitant]
  3. ESOMEPRAZOLE [Concomitant]

REACTIONS (1)
  - COLITIS ISCHAEMIC [None]
